FAERS Safety Report 10393765 (Version 1)
Quarter: 2014Q3

REPORT INFORMATION
  Report Type: Report from Study
  Country: US (occurrence: US)
  Receive Date: 20140819
  Receipt Date: 20140819
  Transmission Date: 20150326
  Serious: Yes (Other)
  Sender: FDA-Public Use
  Company Number: US-ASTELLAS-2014US010567

PATIENT

DRUGS (4)
  1. FICLATUZUMAB [Suspect]
     Active Substance: FICLATUZUMAB
     Indication: PLASMA CELL MYELOMA
  2. ERLOTINIB [Suspect]
     Active Substance: ERLOTINIB
     Indication: PLASMA CELL MYELOMA
  3. FICLATUZUMAB [Suspect]
     Active Substance: FICLATUZUMAB
     Indication: NEOPLASM
     Dosage: UNK, OVER 60 MIN., TOTAL DOSE
     Route: 042
  4. ERLOTINIB [Suspect]
     Active Substance: ERLOTINIB
     Indication: NEOPLASM
     Route: 048

REACTIONS (13)
  - Nausea [None]
  - Rash maculo-papular [None]
  - Dermatitis acneiform [None]
  - Oedema peripheral [Unknown]
  - Hypomagnesaemia [Unknown]
  - Fatigue [None]
  - Diarrhoea [None]
  - Vomiting [None]
  - Headache [None]
  - Hypokalaemia [Unknown]
  - Hypokalaemia [None]
  - Pruritus [None]
  - Dyspnoea [None]
